FAERS Safety Report 17142145 (Version 4)
Quarter: 2020Q1

REPORT INFORMATION
  Report Type: Spontaneous
  Country: FR (occurrence: FR)
  Receive Date: 20191211
  Receipt Date: 20200107
  Transmission Date: 20200409
  Serious: Yes (Other)
  Sender: FDA-Public Use
  Company Number: FR-PFIZER INC-2019529854

PATIENT
  Age: 64 Year
  Sex: Female
  Weight: 49 kg

DRUGS (13)
  1. LEVOTHYROX [Concomitant]
     Active Substance: LEVOTHYROXINE
     Dosage: UNK (75 HALF PER DAY)
     Route: 065
     Dates: start: 2000
  2. EFFERALGAN [Suspect]
     Active Substance: ACETAMINOPHEN
     Indication: HEADACHE
     Dosage: UNK
     Route: 065
  3. ZOLEDRONIC ACID [Suspect]
     Active Substance: ZOLEDRONIC ACID
     Indication: OSTEOPOROSIS
     Dosage: 5 MG, UNK (Q12MO)
     Route: 042
     Dates: start: 20191002
  4. EFFERALGAN [Suspect]
     Active Substance: ACETAMINOPHEN
     Indication: INFLUENZA LIKE ILLNESS
  5. EFFERALGAN [Suspect]
     Active Substance: ACETAMINOPHEN
     Indication: MUSCULOSKELETAL PAIN
  6. INDOCOLLYRE [Suspect]
     Active Substance: INDOMETHACIN
     Indication: EYE PAIN
     Dosage: 3 DROPS, QD (0.1 PERCENT) FOR 3 WEEKS
     Route: 065
     Dates: start: 20191025, end: 20191116
  7. VALIUM [Suspect]
     Active Substance: DIAZEPAM
     Dosage: 3 DROPS, UNK (IN THE EVENING) FOR 1 WEEK
     Route: 065
  8. EFFERALGAN [Suspect]
     Active Substance: ACETAMINOPHEN
     Indication: PAIN
  9. EFFERALGAN [Suspect]
     Active Substance: ACETAMINOPHEN
     Indication: NECK PAIN
  10. DEROXAT [Concomitant]
     Active Substance: PAROXETINE HYDROCHLORIDE
     Dosage: 25 MG, (2/4 PER DAY)
     Route: 065
     Dates: start: 2014
  11. EFFERALGAN [Suspect]
     Active Substance: ACETAMINOPHEN
     Indication: MYALGIA
  12. VITAMIN D [ERGOCALCIFEROL] [Concomitant]
     Active Substance: ERGOCALCIFEROL
     Dosage: UNK
     Route: 065
  13. EFFERALGAN [Suspect]
     Active Substance: ACETAMINOPHEN
     Indication: PYREXIA

REACTIONS (19)
  - Eye pain [Recovered/Resolved]
  - Gastric disorder [Unknown]
  - Fatigue [Unknown]
  - Nervousness [Unknown]
  - Dizziness [Recovered/Resolved]
  - Stress [Unknown]
  - Dyspnoea [Unknown]
  - Ocular hyperaemia [Recovered/Resolved]
  - Pain [Unknown]
  - Myalgia [Unknown]
  - Headache [Recovered/Resolved]
  - Influenza like illness [Recovered/Resolved]
  - Eye inflammation [Recovered/Resolved]
  - Product use in unapproved indication [Unknown]
  - Syncope [Unknown]
  - Malaise [Unknown]
  - Headache [Unknown]
  - Pyrexia [Unknown]
  - Off label use [Unknown]

NARRATIVE: CASE EVENT DATE: 20191003
